FAERS Safety Report 16355171 (Version 1)
Quarter: 2019Q2

REPORT INFORMATION
  Report Type: Spontaneous
  Country: GB (occurrence: GB)
  Receive Date: 20190524
  Receipt Date: 20190524
  Transmission Date: 20190711
  Serious: Yes (Hospitalization, Other)
  Sender: FDA-Public Use
  Company Number: GB-JAZZ-2019-GB-004699

PATIENT
  Age: 70 Year
  Sex: Male

DRUGS (15)
  1. VYXEOS [Suspect]
     Active Substance: CYTARABINE\DAUNORUBICIN
     Dosage: 94 MG/M2 DAYS 1,3
     Route: 042
     Dates: start: 20190115, end: 20190117
  2. ACICLOVIR [Concomitant]
     Active Substance: ACYCLOVIR
     Indication: PROPHYLAXIS
     Dosage: 400 MG, BID
     Route: 048
     Dates: start: 20181126, end: 20190114
  3. CO AMOXICLAV                       /00756801/ [Concomitant]
     Active Substance: AMOXICILLIN\CLAVULANIC ACID
     Indication: PYREXIA
     Dosage: 625 MG, TID
     Dates: start: 20190318
  4. VYXEOS [Suspect]
     Active Substance: CYTARABINE\DAUNORUBICIN
     Indication: ACUTE MYELOID LEUKAEMIA
     Dosage: 144MG/M2 DAY 1,3,5
     Route: 042
     Dates: start: 20181126, end: 20181130
  5. CIPROFLOXACINE                     /00697201/ [Concomitant]
     Active Substance: CIPROFLOXACIN
     Indication: PROPHYLAXIS
     Dosage: 500 MG, BID
     Route: 048
     Dates: start: 20181126, end: 20190114
  6. ITRACONAZOLE. [Concomitant]
     Active Substance: ITRACONAZOLE
     Dosage: 215 MG, BID
     Route: 048
     Dates: start: 20190317
  7. ACICLOVIR [Concomitant]
     Active Substance: ACYCLOVIR
     Dosage: 400 MG, BID
     Route: 048
     Dates: start: 20190317
  8. ITRACONAZOLE. [Concomitant]
     Active Substance: ITRACONAZOLE
     Indication: PROPHYLAXIS
     Dosage: 215 MG, BID
     Route: 048
     Dates: start: 20190119, end: 20190317
  9. AMLODIPINE [Concomitant]
     Active Substance: AMLODIPINE BESYLATE
     Indication: BLOOD PRESSURE INCREASED
     Dosage: UNK
  10. POSACONAZOLE [Concomitant]
     Active Substance: POSACONAZOLE
     Indication: PRODUCT USED FOR UNKNOWN INDICATION
     Dosage: 300 MG, QD
     Route: 048
     Dates: start: 20181126, end: 20190114
  11. ACICLOVIR [Concomitant]
     Active Substance: ACYCLOVIR
     Dosage: 400MG,BID
     Route: 048
     Dates: start: 20190115, end: 20190317
  12. CIPROFLOXACINE                     /00697201/ [Concomitant]
     Active Substance: CIPROFLOXACIN
     Dosage: 500 MG, BID
     Route: 048
     Dates: start: 20190318
  13. VYXEOS [Suspect]
     Active Substance: CYTARABINE\DAUNORUBICIN
     Dosage: 94 MG/M2, UNK
     Route: 042
     Dates: start: 20190318, end: 20190320
  14. CIPROFLOXACINE                     /00697201/ [Concomitant]
     Active Substance: CIPROFLOXACIN
     Dosage: 500 MG, BID
     Route: 048
     Dates: start: 20190115, end: 20190317
  15. CO AMOXICLAV                       /00756801/ [Concomitant]
     Active Substance: AMOXICILLIN\CLAVULANIC ACID
     Indication: COUGH

REACTIONS (6)
  - Pyrexia [Unknown]
  - Bone marrow failure [Unknown]
  - Respiratory tract infection fungal [Not Recovered/Not Resolved]
  - Neutropenic sepsis [Recovered/Resolved]
  - Cough [Unknown]
  - Rash [Unknown]

NARRATIVE: CASE EVENT DATE: 20181209
